FAERS Safety Report 15403101 (Version 3)
Quarter: 2018Q4

REPORT INFORMATION
  Report Type: Spontaneous
  Country: JP (occurrence: JP)
  Receive Date: 20180919
  Receipt Date: 20181010
  Transmission Date: 20190204
  Serious: Yes (Hospitalization)
  Sender: FDA-Public Use
  Company Number: PHJP2018JP016182

PATIENT
  Age: 58 Year
  Sex: Male

DRUGS (3)
  1. MARDUOX [Concomitant]
     Active Substance: BETAMETHASONE BUTYRATE PROPIONATE\MAXACALCITOL
     Indication: PSORIASIS
     Dosage: 2 G, QD
     Route: 061
     Dates: start: 20180418, end: 20180615
  2. COSENTYX [Suspect]
     Active Substance: SECUKINUMAB
     Indication: PSORIASIS
     Dosage: 300 MG, QW
     Route: 058
     Dates: start: 20180518, end: 20180615
  3. TACROLIMUS. [Concomitant]
     Active Substance: TACROLIMUS
     Indication: PSORIASIS
     Dosage: UNK
     Route: 065
     Dates: start: 20180718

REACTIONS (10)
  - Oropharyngeal pain [Unknown]
  - Abdominal pain [Unknown]
  - Aphthous ulcer [Recovered/Resolved]
  - Oesophageal ulcer [Recovered/Resolved]
  - Diarrhoea [Recovered/Resolved]
  - Pharyngeal ulceration [Recovering/Resolving]
  - Large intestinal ulcer [Recovered/Resolved]
  - Thrombosis [Recovered/Resolved]
  - Eating disorder [Unknown]
  - Bronchial ulceration [Recovered/Resolved]

NARRATIVE: CASE EVENT DATE: 20180701
